FAERS Safety Report 14075686 (Version 1)
Quarter: 2017Q4

REPORT INFORMATION
  Report Type: Spontaneous
  Country: US (occurrence: US)
  Receive Date: 20171010
  Receipt Date: 20171010
  Transmission Date: 20180321
  Serious: No
  Sender: FDA-Public Use
  Company Number: US-MYLANLABS-2016M1043350

PATIENT
  Sex: Male

DRUGS (1)
  1. MIDODRINE HYDROCHLORIDE TABLETS USP [Suspect]
     Active Substance: MIDODRINE HYDROCHLORIDE
     Indication: BLOOD PRESSURE MANAGEMENT
     Dosage: 10 MG, Q6H
     Route: 048
     Dates: start: 201312

REACTIONS (1)
  - Drug ineffective [Not Recovered/Not Resolved]
